FAERS Safety Report 4742392-X (Version None)
Quarter: 2005Q3

REPORT INFORMATION
  Report Type: 
  Country: None (occurrence: None)
  Receive Date: 20050808
  Receipt Date: 20050727
  Transmission Date: 20060218
  Serious: Yes (Hospitalization, Other)
  Sender: FDA-Public Use
  Company Number: 2005108138

PATIENT
  Age: 54 Year
  Sex: Male

DRUGS (11)
  1. ZIPRASIDONE (CAPS) (ZIPRASIDONE) [Suspect]
     Indication: ILL-DEFINED DISORDER
     Dosage: 160 MG (80 MG, 2 IN 1 D), UNKNOWN
     Route: 065
     Dates: start: 20010401
  2. OLANZAPINE (OLANZAPINE) [Concomitant]
  3. NAPROXEN [Concomitant]
  4. PROPANOLOL (PROPANOLOL) [Concomitant]
  5. CLONAZEPAM [Concomitant]
  6. ZOLPIDEM TARTRATE [Concomitant]
  7. BENZTROPEINE (BENZTROPEINE) [Concomitant]
  8. RANITIDINE HCL [Concomitant]
  9. DOCUSATE SODIUM (DOCUSATE SODIUM) [Concomitant]
  10. ALBUTEROL [Concomitant]
  11. FLUTICASONE PROPIONATE [Concomitant]

REACTIONS (3)
  - CHOLELITHIASIS [None]
  - ELECTROCARDIOGRAM QT CORRECTED INTERVAL PROLONGED [None]
  - RHABDOMYOLYSIS [None]
